FAERS Safety Report 6863476-6 (Version None)
Quarter: 2010Q3

REPORT INFORMATION
  Report Type: 
  Country: None (occurrence: None)
  Receive Date: 20100719
  Receipt Date: 20090901
  Transmission Date: 20110219
  Serious: Yes (Hospitalization)
  Sender: FDA-Public Use
  Company Number: 020522723A

PATIENT
  Age: 19 Month
  Sex: Female

DRUGS (2)
  1. COLGATE TOTAL WHITENING PASTE TOOTHPASTE [Suspect]
     Indication: DENTAL PLAQUE
     Dosage: ORAL
     Route: 048
  2. COLGATE TOTAL WHITENING PASTE TOOTHPASTE [Suspect]
     Indication: GINGIVITIS
     Dosage: ORAL
     Route: 048

REACTIONS (5)
  - ACCIDENTAL EXPOSURE [None]
  - DIARRHOEA [None]
  - OROPHARYNGEAL BLISTERING [None]
  - PYREXIA [None]
  - WRONG TECHNIQUE IN DRUG USAGE PROCESS [None]
